FAERS Safety Report 9914573 (Version 1)
Quarter: 2014Q1

REPORT INFORMATION
  Report Type: Spontaneous
  Country: TR (occurrence: TR)
  Receive Date: 20140220
  Receipt Date: 20140220
  Transmission Date: 20141002
  Serious: Yes (Hospitalization, Other)
  Sender: FDA-Public Use
  Company Number: PHHY2014TR017567

PATIENT
  Age: 33 Year
  Sex: Male

DRUGS (2)
  1. CICLOSPORIN [Suspect]
     Indication: UVEITIS
  2. AZATHIOPRINE [Suspect]
     Indication: HEPATOTOXICITY

REACTIONS (7)
  - Hepatitis cholestatic [Unknown]
  - Asthenia [Unknown]
  - Nausea [Unknown]
  - Vomiting [Unknown]
  - Jaundice [Unknown]
  - Hepatotoxicity [Unknown]
  - Toxicity to various agents [Unknown]
